FAERS Safety Report 5806858-3 (Version None)
Quarter: 2008Q3

REPORT INFORMATION
  Report Type: 
  Country: None (occurrence: None)
  Receive Date: 20080711
  Receipt Date: 20080707
  Transmission Date: 20090109
  Serious: Yes (Other)
  Sender: FDA-Public Use
  Company Number: US-BRISTOL-MYERS SQUIBB COMPANY-14252720

PATIENT
  Age: 19 Year
  Sex: Female

DRUGS (8)
  1. CEFEPIME [Suspect]
     Indication: PNEUMONIA
  2. TOBRAMYCIN [Suspect]
     Indication: PNEUMONIA
     Dosage: LATER CHANGED TO 80 MG 2/DAY, AGAIN CHANGED TO 300 MG 1/DAY
     Route: 055
  3. VANCOMYCIN HCL [Suspect]
     Indication: PNEUMONIA
  4. AMPHOTERICIN B [Suspect]
     Indication: PNEUMONIA
  5. GANCICLOVIR [Suspect]
     Indication: PNEUMONIA
  6. FLUCONAZOLE [Suspect]
     Indication: PNEUMONIA
  7. FLUCYTOSINE [Suspect]
     Indication: PNEUMONIA
  8. TACROLIMUS [Suspect]
     Indication: PNEUMONIA

REACTIONS (1)
  - DRUG LEVEL INCREASED [None]
